FAERS Safety Report 6788256-1 (Version None)
Quarter: 2010Q2

REPORT INFORMATION
  Report Type: 
  Country: None (occurrence: None)
  Receive Date: 20100623
  Receipt Date: 20080226
  Transmission Date: 20101027
  Serious: No
  Sender: FDA-Public Use
  Company Number: US-PFIZER INC-2008018374

PATIENT
  Sex: Male
  Weight: 68.2 kg

DRUGS (5)
  1. GEODON [Suspect]
     Route: 048
  2. CELEXA [Concomitant]
  3. ADDERALL XR 10 [Concomitant]
  4. ATIVAN [Concomitant]
  5. SONATA [Concomitant]

REACTIONS (2)
  - FEELING ABNORMAL [None]
  - INCORRECT DOSE ADMINISTERED [None]
